FAERS Safety Report 11778072 (Version 4)
Quarter: 2016Q2

REPORT INFORMATION
  Report Type: Spontaneous
  Country: US (occurrence: US)
  Receive Date: 20151125
  Receipt Date: 20160422
  Transmission Date: 20160815
  Serious: No
  Sender: FDA-Public Use
  Company Number: US-PFIZER INC-2015393130

PATIENT
  Sex: Male

DRUGS (7)
  1. DILANTIN [Suspect]
     Active Substance: PHENYTOIN
     Dosage: 300 MG, ALTERNATE DAY ON ODD DAYS
     Route: 064
     Dates: start: 1956
  2. DILANTIN [Suspect]
     Active Substance: PHENYTOIN
     Dosage: 300 MG, DAILY
     Route: 064
     Dates: start: 1968
  3. PHENOBARB [Suspect]
     Active Substance: PHENOBARBITAL SODIUM
     Dosage: UNK
     Route: 064
  4. DILANTIN [Suspect]
     Active Substance: PHENYTOIN
     Indication: CONVULSION PROPHYLAXIS
     Dosage: 100 MG, DAILY
     Route: 064
     Dates: start: 1955, end: 1965
  5. DILANTIN [Suspect]
     Active Substance: PHENYTOIN
     Indication: EPILEPSY
     Dosage: 200 MG, DAILY
     Route: 064
     Dates: start: 1965, end: 1968
  6. PHENOBARB [Suspect]
     Active Substance: PHENOBARBITAL SODIUM
     Dosage: UNK
     Route: 064
     Dates: start: 1970, end: 197109
  7. DILANTIN [Suspect]
     Active Substance: PHENYTOIN
     Dosage: 200 MG, ALTERNATE DAY ON EVEN DAYS
     Route: 064
     Dates: start: 1956

REACTIONS (2)
  - Maternal exposure during pregnancy [Unknown]
  - Weight decreased [Recovered/Resolved]
